FAERS Safety Report 24058606 (Version 2)
Quarter: 2024Q3

REPORT INFORMATION
  Report Type: Spontaneous
  Country: JP (occurrence: JP)
  Receive Date: 20240708
  Receipt Date: 20240711
  Transmission Date: 20241017
  Serious: Yes (Other)
  Sender: TEVA
  Company Number: JP-TEVA-VS-3216351

PATIENT
  Sex: Male

DRUGS (4)
  1. ALPRAZOLAM [Suspect]
     Active Substance: ALPRAZOLAM
     Indication: Autonomic nervous system imbalance
     Dosage: TIME INTERVAL: 0.33333333 DAYS: AT TWO AND A HALF TABLETS, 0.4MG.TABLETS
     Route: 048
  2. ALPRAZOLAM [Suspect]
     Active Substance: ALPRAZOLAM
     Indication: Autonomic nervous system imbalance
     Route: 048
  3. ALPRAZOLAM [Suspect]
     Active Substance: ALPRAZOLAM
     Indication: Autonomic nervous system imbalance
     Route: 048
  4. CLOTIAZEPAM [Concomitant]
     Active Substance: CLOTIAZEPAM
     Dosage: DOSAGE IS UNKNOWN
     Route: 048

REACTIONS (9)
  - Arrhythmia [Unknown]
  - Pain in extremity [Unknown]
  - Night sweats [Unknown]
  - Nocturia [Not Recovered/Not Resolved]
  - Drug dependence [Not Recovered/Not Resolved]
  - Physical deconditioning [Unknown]
  - Therapy cessation [Unknown]
  - Hyperhidrosis [Not Recovered/Not Resolved]
  - Wrong technique in product usage process [Unknown]
